FAERS Safety Report 6820279-6 (Version None)
Quarter: 2010Q3

REPORT INFORMATION
  Report Type: 
  Country: None (occurrence: None)
  Receive Date: 20100707
  Receipt Date: 20100527
  Transmission Date: 20110219
  Serious: No
  Sender: FDA-Public Use
  Company Number: US-BAYER-201024883NA

PATIENT
  Age: 90 Year
  Sex: Female
  Weight: 140 kg

DRUGS (1)
  1. MAGNEVIST [Suspect]
     Indication: NUCLEAR MAGNETIC RESONANCE IMAGING
     Route: 042
     Dates: start: 20100525, end: 20100525

REACTIONS (3)
  - ERYTHEMA [None]
  - RASH MACULAR [None]
  - URTICARIA [None]
